FAERS Safety Report 9909610 (Version 1)
Quarter: 2014Q1

REPORT INFORMATION
  Report Type: Spontaneous
  Country: US (occurrence: None)
  Receive Date: 20140214
  Receipt Date: 20140214
  Transmission Date: 20141002
  Serious: No
  Sender: FDA-Public Use
  Company Number: None

PATIENT
  Age: 75 Year
  Sex: Female
  Weight: 69.4 kg

DRUGS (7)
  1. DIVALPROEX [Suspect]
     Dosage: 1250       PO
     Route: 048
  2. LIPITOR [Concomitant]
  3. JANUVIA [Concomitant]
  4. OLANZAPINE [Concomitant]
  5. LISINOPRIL [Concomitant]
  6. CLONAZEPAM [Concomitant]
  7. GLIMEPRIDE [Concomitant]

REACTIONS (3)
  - Haematocrit decreased [None]
  - Haemoglobin decreased [None]
  - Anaemia [None]
